FAERS Safety Report 14564135 (Version 1)
Quarter: 2018Q1

REPORT INFORMATION
  Report Type: Report from Study
  Country: ES (occurrence: ES)
  Receive Date: 20180222
  Receipt Date: 20180222
  Transmission Date: 20180509
  Serious: Yes (Life-Threatening, Hospitalization)
  Sender: FDA-Public Use
  Company Number: ES-TEVA-2018-ES-858076

PATIENT
  Age: 82 Year
  Sex: Female

DRUGS (6)
  1. ENALAPRIL MALEATO (2142MA) [Interacting]
     Active Substance: ENALAPRIL MALEATE
     Indication: HYPERTENSION
     Route: 048
     Dates: start: 201212, end: 20160404
  2. LERZAM 10 MG COMPRIMIDOS RECUBIERTOS CON PELICULA [Concomitant]
     Indication: HYPERTENSION
     Route: 048
     Dates: start: 201402, end: 20160404
  3. ALOPURINOL (318A) [Concomitant]
     Route: 048
     Dates: start: 201601, end: 20160404
  4. FUROSEMIDA (1615A) [Interacting]
     Active Substance: FUROSEMIDE
     Indication: HYPERTENSION
     Route: 048
     Dates: start: 201305, end: 20160422
  5. GABAPENTINA (2641A) [Suspect]
     Active Substance: GABAPENTIN
     Route: 048
     Dates: start: 201401, end: 20160404
  6. SINTROM [Concomitant]
     Active Substance: ACENOCOUMAROL
     Route: 048
     Dates: start: 2010

REACTIONS (3)
  - Acute kidney injury [Recovered/Resolved]
  - Hyperkalaemia [Recovered/Resolved]
  - Drug interaction [Unknown]

NARRATIVE: CASE EVENT DATE: 201604
